FAERS Safety Report 6437077-8 (Version None)
Quarter: 2009Q4

REPORT INFORMATION
  Report Type: 
  Country: None (occurrence: None)
  Receive Date: 20091112
  Receipt Date: 20091030
  Transmission Date: 20100525
  Serious: Yes (Other)
  Sender: FDA-Public Use
  Company Number: GB-ELI_LILLY_AND_COMPANY-GB200807003817

PATIENT
  Age: 13 Year
  Sex: Female
  Weight: 48 kg

DRUGS (1)
  1. STRATTERA [Suspect]
     Indication: ATTENTION DEFICIT/HYPERACTIVITY DISORDER
     Dosage: 54 MG, UNKNOWN
     Route: 065
     Dates: start: 20080417, end: 20080704

REACTIONS (4)
  - AGGRESSION [None]
  - DEPRESSED MOOD [None]
  - INTENTIONAL SELF-INJURY [None]
  - SUICIDAL IDEATION [None]
